FAERS Safety Report 23687558 (Version 1)
Quarter: 2024Q1

REPORT INFORMATION
  Report Type: Spontaneous
  Country: US (occurrence: US)
  Receive Date: 20240329
  Receipt Date: 20240329
  Transmission Date: 20240410
  Serious: Yes (Other)
  Sender: FDA-Public Use
  Company Number: US-FreseniusKabi-FK202405115

PATIENT
  Age: 52 Year
  Sex: Female

DRUGS (1)
  1. LACTULOSE [Suspect]
     Active Substance: LACTULOSE
     Indication: Product used for unknown indication
     Dosage: TRADE NAME: CONSTULOSE (LACTULOSE)?EXPIRATION DATE: UNKNOWN
     Route: 048

REACTIONS (1)
  - Anaphylactic reaction [Recovered/Resolved]
